FAERS Safety Report 6008039-X (Version None)
Quarter: 2008Q4

REPORT INFORMATION
  Report Type: 
  Country: None (occurrence: None)
  Receive Date: 20081217
  Receipt Date: 20080815
  Transmission Date: 20090506
  Serious: Yes (Other)
  Sender: FDA-Public Use
  Company Number: CA-ASTRAZENECA-2008UW15950

PATIENT
  Age: 13958 Day
  Sex: Male
  Weight: 70.3 kg

DRUGS (4)
  1. CRESTOR [Suspect]
     Indication: HYPERCHOLESTEROLAEMIA
     Route: 048
     Dates: start: 20060101, end: 20080807
  2. ASPIRIN [Concomitant]
     Indication: ROUTINE HEALTH MAINTENANCE
     Route: 048
     Dates: start: 20060101, end: 20080807
  3. PAXIL [Concomitant]
     Indication: ANXIETY
     Route: 048
  4. MULTI-VITAMIN [Concomitant]
     Indication: ROUTINE HEALTH MAINTENANCE
     Route: 048

REACTIONS (2)
  - ANGIOEDEMA [None]
  - DYSPHONIA [None]
